FAERS Safety Report 15634734 (Version 3)
Quarter: 2019Q2

REPORT INFORMATION
  Report Type: Report from Study
  Country: US (occurrence: US)
  Receive Date: 20181119
  Receipt Date: 20190624
  Transmission Date: 20190711
  Serious: Yes (Hospitalization)
  Sender: FDA-Public Use
  Company Number: US-ACTELION-A-NJ2018-182029

PATIENT
  Sex: Female
  Weight: 79.37 kg

DRUGS (6)
  1. METOPROLOL. [Concomitant]
     Active Substance: METOPROLOL
     Dosage: 50 MG, QD
  2. OPSUMIT [Suspect]
     Active Substance: MACITENTAN
     Indication: PULMONARY ARTERIAL HYPERTENSION
     Dosage: 10 MG, QD
     Route: 048
     Dates: start: 20190205
  3. WARFARIN [Concomitant]
     Active Substance: WARFARIN
  4. SILDENAFIL CITRATE. [Concomitant]
     Active Substance: SILDENAFIL CITRATE
  5. UPTRAVI [Suspect]
     Active Substance: SELEXIPAG
     Indication: PULMONARY ARTERIAL HYPERTENSION
     Dosage: 800 MCG, BID
     Route: 048
  6. METOPROLOL. [Concomitant]
     Active Substance: METOPROLOL
     Dosage: 50 MG, BID

REACTIONS (5)
  - Cardiac disorder [Unknown]
  - Cardiac pacemaker adjustment [Unknown]
  - Product dose omission [Unknown]
  - Pulmonary arterial hypertension [Unknown]
  - Disease complication [Unknown]
